FAERS Safety Report 9657378 (Version 2)
Quarter: 2014Q4

REPORT INFORMATION
  Report Type: Spontaneous
  Country: GB (occurrence: GB)
  Receive Date: 20131030
  Receipt Date: 20141006
  Transmission Date: 20150529
  Serious: Yes (Disabling, Other)
  Sender: FDA-Public Use
  Company Number: GB-PFIZER INC-2013305660

PATIENT
  Sex: Female

DRUGS (5)
  1. DIHYDROCODEINE [Interacting]
     Active Substance: DIHYDROCODEINE
     Indication: BACK PAIN
     Dosage: UNK
     Route: 048
  2. CHAMPIX [Interacting]
     Active Substance: VARENICLINE TARTRATE
     Dosage: 0.5 MG, DAILY
     Route: 048
     Dates: start: 200703, end: 200703
  3. CHAMPIX [Suspect]
     Active Substance: VARENICLINE TARTRATE
     Indication: SMOKING CESSATION THERAPY
     Dosage: 0.5 MG, 2X/DAY
     Route: 048
     Dates: start: 20070227, end: 2007
  4. CHAMPIX [Interacting]
     Active Substance: VARENICLINE TARTRATE
     Dosage: 0.5 MG, 2X/DAY
     Route: 048
     Dates: start: 200703, end: 20070316
  5. CHAMPIX [Interacting]
     Active Substance: VARENICLINE TARTRATE
     Dosage: UNK (INCREASED DOSE)
     Route: 048
     Dates: start: 2007, end: 200703

REACTIONS (5)
  - Derealisation [Recovered/Resolved]
  - Feeling abnormal [Recovered/Resolved]
  - Dysphoria [Recovered/Resolved]
  - Potentiating drug interaction [Recovered/Resolved]
  - Memory impairment [Recovered/Resolved]

NARRATIVE: CASE EVENT DATE: 20070303
